FAERS Safety Report 8673408 (Version 4)
Quarter: 2012Q4

REPORT INFORMATION
  Report Type: 
  Country: JP (occurrence: JP)
  Receive Date: 20120719
  Receipt Date: 20121001
  Transmission Date: 20130627
  Serious: Yes (Hospitalization)
  Sender: FDA-Public Use
  Company Number: PHHY2012JP061332

PATIENT
  Age: 82 Year
  Sex: Female
  Weight: 42 kg

DRUGS (8)
  1. EXELON PATCH [Suspect]
     Indication: DEMENTIA WITH LEWY BODIES
     Dosage: 4.5 mg, daily
     Route: 062
     Dates: start: 201201, end: 20120228
  2. EXELON PATCH [Suspect]
     Dosage: 9 mg, daily
     Route: 062
     Dates: start: 20120301, end: 20120614
  3. EXELON PATCH [Suspect]
     Dosage: 9 mg, daily
     Route: 062
     Dates: start: 20120713
  4. HERBAL EXTRACTS NOS [Suspect]
     Indication: HEPATITIS B
     Dosage: 7.5 g, UNK
     Route: 048
     Dates: end: 20120713
  5. BROTIZOLAM [Suspect]
     Indication: INSOMNIA
     Dosage: 0.25 mg, UNK
     Route: 048
     Dates: end: 20120713
  6. GOKUMISIN [Concomitant]
     Indication: HEPATITIS B
     Dosage: 150 mg, UNK
     Route: 048
     Dates: end: 20120713
  7. EPL [Concomitant]
     Indication: HYPERLIPIDAEMIA
     Dosage: 250 mg, UNK
     Route: 048
     Dates: end: 20120713
  8. NORVASC [Concomitant]
     Indication: HYPERTENSION
     Dosage: 2.5 mg, UNK
     Route: 048
     Dates: end: 20120713

REACTIONS (9)
  - Hepatic encephalopathy [Recovering/Resolving]
  - Altered state of consciousness [Recovering/Resolving]
  - Blood cholinesterase increased [Unknown]
  - Pneumonia [Recovered/Resolved]
  - Hyperammonaemia [Unknown]
  - Dehydration [Recovered/Resolved]
  - Drug administration error [Unknown]
  - Hepatic cirrhosis [None]
  - Condition aggravated [None]
